FAERS Safety Report 23262366 (Version 1)
Quarter: 2023Q4

REPORT INFORMATION
  Report Type: Spontaneous
  Country: GB (occurrence: GB)
  Receive Date: 20231205
  Receipt Date: 20231205
  Transmission Date: 20240110
  Serious: Yes (Disabling)
  Sender: FDA-Public Use
  Company Number: None

PATIENT
  Age: 30 Year
  Sex: Female
  Weight: 57 kg

DRUGS (4)
  1. TOPIRAMATE [Suspect]
     Active Substance: TOPIRAMATE
     Indication: Product used for unknown indication
     Dosage: 100 MILLIGRAM
     Route: 065
     Dates: start: 20230911, end: 20231025
  2. DULOXETINE [Concomitant]
     Active Substance: DULOXETINE
     Dosage: 1 DOSAGE FORM, QD
     Route: 065
     Dates: start: 20231129
  3. SENNA [Concomitant]
     Active Substance: SENNA LEAF\SENNOSIDES\SENNOSIDES A AND B
     Dosage: TAKE 1 OR 2 AT NIGHT
     Route: 065
     Dates: start: 20230925, end: 20230926
  4. ZOLMITRIPTAN [Concomitant]
     Active Substance: ZOLMITRIPTAN
     Indication: Headache
     Dosage: SPRAY INTO ONE NOSTRIL AT ONSET OF HEA...
     Route: 045
     Dates: start: 20230911, end: 20231009

REACTIONS (1)
  - Paraesthesia [Recovered/Resolved]

NARRATIVE: CASE EVENT DATE: 20230911
